FAERS Safety Report 12212750 (Version 1)
Quarter: 2016Q1

REPORT INFORMATION
  Report Type: Spontaneous
  Country: US (occurrence: US)
  Receive Date: 20160328
  Receipt Date: 20160328
  Transmission Date: 20160526
  Serious: Yes (Other)
  Sender: FDA-Public Use
  Company Number: US-ROCHE-1731185

PATIENT
  Age: 71 Year
  Sex: Male

DRUGS (1)
  1. AVASTIN [Suspect]
     Active Substance: BEVACIZUMAB
     Indication: BRAIN NEOPLASM MALIGNANT
     Route: 065

REACTIONS (8)
  - Headache [Unknown]
  - Pain [Not Recovered/Not Resolved]
  - Infection [Unknown]
  - Anal abscess [Unknown]
  - Ill-defined disorder [Unknown]
  - Brain oedema [Not Recovered/Not Resolved]
  - Dysphemia [Unknown]
  - Neoplasm recurrence [Unknown]
